FAERS Safety Report 8537001-8 (Version None)
Quarter: 2012Q3

REPORT INFORMATION
  Report Type: 
  Country: None (occurrence: None)
  Receive Date: 20120725
  Receipt Date: 20120723
  Transmission Date: 20120928
  Serious: Yes (Hospitalization)
  Sender: FDA-Public Use
  Company Number: FR-AMGEN-FRACT2012023036

PATIENT
  Age: 42 Year
  Sex: Female
  Weight: 52 kg

DRUGS (13)
  1. GEMZAR [Concomitant]
     Dosage: UNK
     Dates: start: 20111206
  2. DENOSUMAB [Suspect]
     Indication: HYPERCALCAEMIA OF MALIGNANCY
     Dosage: 1.7 ML, UNK
     Dates: start: 20111019, end: 20111116
  3. ZOFRAN [Concomitant]
     Indication: NAUSEA
     Dosage: 8 MG, UNK
     Route: 048
     Dates: start: 20111206
  4. PRIMPERAN TAB [Concomitant]
     Indication: NAUSEA
     Dosage: 10 MG, UNK
     Route: 048
     Dates: start: 20111206
  5. NEORECORMON [Concomitant]
     Indication: ANAEMIA
     Dosage: 500 IU, UNK
     Route: 042
     Dates: start: 20111206
  6. POLYETHYLENE GLYCOL [Concomitant]
     Indication: CONSTIPATION
     Dosage: 4 G, UNK
     Route: 048
     Dates: start: 20111019
  7. PEGFILGRASTIM [Concomitant]
     Dosage: 6 MG, UNK
     Route: 042
     Dates: start: 20111004
  8. KYTRIL [Concomitant]
     Indication: VOMITING
  9. MOTILIUM [Concomitant]
     Indication: NAUSEA
     Dosage: 2 MG, UNK
     Route: 048
     Dates: start: 20111019
  10. KYTRIL [Concomitant]
     Indication: NAUSEA
     Dosage: 1 MG, UNK
     Route: 042
     Dates: start: 20111019
  11. ZOMETA [Concomitant]
     Indication: HYPERCALCAEMIA
     Dosage: 4 MG, UNK
     Route: 042
     Dates: start: 20111201
  12. TRAMADOL HCL [Concomitant]
     Indication: NECK PAIN
     Dosage: 50 MG, UNK
     Route: 048
     Dates: start: 20111206
  13. MICROLAX [Concomitant]
     Indication: CONSTIPATION
     Dosage: UNK
     Route: 054
     Dates: start: 20111206

REACTIONS (2)
  - TACHYCARDIA [None]
  - HYPERCALCAEMIA [None]
